FAERS Safety Report 4359825-3 (Version None)
Quarter: 2004Q2

REPORT INFORMATION
  Report Type: 
  Country: None (occurrence: None)
  Receive Date: 20040514
  Receipt Date: 20040503
  Transmission Date: 20050107
  Serious: Yes (Hospitalization, Disabling, Other)
  Sender: FDA-Public Use
  Company Number: 2004029727

PATIENT
  Sex: Female

DRUGS (3)
  1. NEURONTIN [Suspect]
     Indication: INTESTINAL ISCHAEMIA
     Dates: start: 19970101, end: 20040201
  2. INSULIN [Concomitant]
  3. INSULIN GLARGINE (INSULIN GLARGINE) [Concomitant]

REACTIONS (23)
  - ABDOMINAL DISTENSION [None]
  - ABDOMINAL PAIN [None]
  - ABDOMINAL PAIN UPPER [None]
  - ACTIVITIES OF DAILY LIVING IMPAIRED [None]
  - ACUTE STRESS DISORDER [None]
  - ASCITES [None]
  - CRYING [None]
  - DIABETES MELLITUS INADEQUATE CONTROL [None]
  - DYSPNOEA [None]
  - DYSSTASIA [None]
  - EMOTIONAL DISORDER [None]
  - FATIGUE [None]
  - HEPATIC CIRRHOSIS [None]
  - HEPATIC STEATOSIS [None]
  - HERPES ZOSTER [None]
  - HOMICIDAL IDEATION [None]
  - IMPAIRED WORK ABILITY [None]
  - INTESTINAL OBSTRUCTION [None]
  - MOVEMENT DISORDER [None]
  - NERVOUSNESS [None]
  - POSTOPERATIVE ADHESION [None]
  - SIMPLE PARTIAL SEIZURES [None]
  - VISUAL DISTURBANCE [None]
